FAERS Safety Report 8783108 (Version 2)
Quarter: 2013Q2

REPORT INFORMATION
  Report Type: Report from Study
  Country: BR (occurrence: BR)
  Receive Date: 20120914
  Receipt Date: 20130517
  Transmission Date: 20140414
  Serious: Yes (Hospitalization)
  Sender: FDA-Public Use
  Company Number: BR-ROCHE-1125455

PATIENT
  Sex: Female
  Weight: 75 kg

DRUGS (9)
  1. MABTHERA [Suspect]
     Indication: RHEUMATOID ARTHRITIS
     Route: 042
     Dates: start: 20101101, end: 20101213
  2. ETANERCEPT [Suspect]
     Indication: RHEUMATOID ARTHRITIS
     Route: 058
  3. PRELONE [Concomitant]
  4. RANITIDINE [Concomitant]
  5. CONDROSULF [Concomitant]
  6. PROFLAM [Concomitant]
  7. MUSCULAX [Concomitant]
     Indication: HYPOTONIA
  8. ALGINAC [Concomitant]
     Route: 065
  9. OMEPRAZOLE [Concomitant]
     Route: 065

REACTIONS (2)
  - Arthropathy [Recovered/Resolved]
  - Urinary tract infection [Recovered/Resolved]
